FAERS Safety Report 11833104 (Version 1)
Quarter: 2015Q4

REPORT INFORMATION
  Report Type: Spontaneous
  Country: US (occurrence: US)
  Receive Date: 20151214
  Receipt Date: 20151214
  Transmission Date: 20160305
  Serious: Yes (Other)
  Sender: FDA-Public Use
  Company Number: US-BANPHARM-20154479

PATIENT
  Age: 70 Year
  Sex: Female
  Weight: 63.5 kg

DRUGS (2)
  1. ALEVE [Suspect]
     Active Substance: NAPROXEN SODIUM
     Indication: ARTHRITIS
     Dosage: 1 DF, BID,
     Route: 048
  2. LIPOFLAVINOIDS [Concomitant]

REACTIONS (2)
  - Incorrect drug administration duration [Not Recovered/Not Resolved]
  - Tinnitus [Not Recovered/Not Resolved]
